FAERS Safety Report 17574258 (Version 1)
Quarter: 2020Q1

REPORT INFORMATION
  Report Type: Spontaneous
  Country: US (occurrence: US)
  Receive Date: 20200324
  Receipt Date: 20200324
  Transmission Date: 20200409
  Serious: No
  Sender: FDA-Public Use
  Company Number: US-CIPLA LTD.-2019US07004

PATIENT

DRUGS (2)
  1. VYVANSE [Concomitant]
     Active Substance: LISDEXAMFETAMINE DIMESYLATE
     Indication: ATTENTION DEFICIT/HYPERACTIVITY DISORDER
     Dosage: 30 MILLIGRAM, QD, (ONCE A DAY MORNING (MONDAY-FRIDAY))
     Route: 065
     Dates: start: 201901
  2. SERTRALINE [Suspect]
     Active Substance: SERTRALINE HYDROCHLORIDE
     Indication: DEPRESSION
     Dosage: 50 MILLIGRAM, QD, (ONCE A DAY, EVERY EVENING)
     Route: 048
     Dates: start: 20190926

REACTIONS (1)
  - Abdominal discomfort [Recovering/Resolving]

NARRATIVE: CASE EVENT DATE: 20191005
